FAERS Safety Report 18168765 (Version 1)
Quarter: 2020Q3

REPORT INFORMATION
  Report Type: Other
  Country: FR (occurrence: FR)
  Receive Date: 20200819
  Receipt Date: 20200819
  Transmission Date: 20201103
  Serious: Yes (Hospitalization)
  Sender: FDA-Public Use
  Company Number: FR-CADILA HEALTHCARE LIMITED-FR-ZYDUS-049632

PATIENT

DRUGS (4)
  1. OLANZAPINE. [Suspect]
     Active Substance: OLANZAPINE
     Indication: BIPOLAR DISORDER
     Dosage: 20 MILLIGRAM, QD
     Route: 048
     Dates: start: 20200226, end: 20200305
  2. TERALITHE [Suspect]
     Active Substance: LITHIUM CARBONATE
     Indication: BIPOLAR DISORDER
     Dosage: 3 DOSAGE FORM, QD
     Route: 048
     Dates: start: 20191105
  3. ZYPADHERA [Suspect]
     Active Substance: OLANZAPINE PAMOATE
     Indication: BIPOLAR DISORDER
     Dosage: 1 DOSAGE FORM, QD
     Route: 030
     Dates: start: 20191230, end: 20200210
  4. OLANZAPINE. [Suspect]
     Active Substance: OLANZAPINE
     Dosage: 20 UNK
     Route: 048
     Dates: start: 20191105, end: 20191227

REACTIONS (2)
  - Condition aggravated [Recovering/Resolving]
  - Toxic skin eruption [Recovering/Resolving]

NARRATIVE: CASE EVENT DATE: 20200214
